FAERS Safety Report 8518370-1 (Version None)
Quarter: 2012Q3

REPORT INFORMATION
  Report Type: 
  Country: None (occurrence: None)
  Receive Date: 20120718
  Receipt Date: 20120713
  Transmission Date: 20120928
  Serious: Yes (Death, Hospitalization, Other)
  Sender: FDA-Public Use
  Company Number: PT-ABBOTT-12P-130-0941325-00

PATIENT
  Sex: Male
  Weight: 75 kg

DRUGS (4)
  1. HUMIRA [Suspect]
     Route: 058
     Dates: start: 20100201, end: 20120421
  2. HUMIRA [Suspect]
     Indication: ANKYLOSING SPONDYLITIS
     Route: 058
     Dates: start: 20070101, end: 20070101
  3. HUMIRA [Suspect]
     Route: 058
     Dates: start: 20090101, end: 20100101
  4. BETA BLOCKING AGENTS [Concomitant]
     Indication: HYPERTENSION

REACTIONS (16)
  - PULMONARY TUBERCULOSIS [None]
  - PLEURAL EFFUSION [None]
  - RESPIRATORY TRACT HAEMORRHAGE [None]
  - PLEURISY [None]
  - LYMPHADENOPATHY MEDIASTINAL [None]
  - TUBERCULOSIS [None]
  - ATRIAL FIBRILLATION [None]
  - RENAL IMPAIRMENT [None]
  - CARDIOMEGALY [None]
  - STREPTOCOCCAL INFECTION [None]
  - SALMONELLOSIS [None]
  - CARDIO-RESPIRATORY ARREST [None]
  - PNEUMONIA [None]
  - AORTIC DISSECTION [None]
  - INGUINAL HERNIA [None]
  - PERICARDITIS [None]
